FAERS Safety Report 18329410 (Version 1)
Quarter: 2020Q3

REPORT INFORMATION
  Report Type: Report from Study
  Country: CA (occurrence: CA)
  Receive Date: 20200930
  Receipt Date: 20200930
  Transmission Date: 20201103
  Serious: Yes (Other)
  Sender: FDA-Public Use
  Company Number: CA-ACCORD-203101

PATIENT
  Age: 56 Year
  Sex: Female
  Weight: 64 kg

DRUGS (11)
  1. PRAVASTATIN. [Suspect]
     Active Substance: PRAVASTATIN
     Indication: BLOOD CHOLESTEROL ABNORMAL
  2. PRAVASTATIN. [Suspect]
     Active Substance: PRAVASTATIN
     Indication: BLOOD CHOLESTEROL ABNORMAL
  3. ALIROCUMAB [Suspect]
     Active Substance: ALIROCUMAB
     Indication: TYPE IIA HYPERLIPIDAEMIA
     Dosage: FREQUENCY: CYCLICAL
     Route: 058
  4. REPATHA [Concomitant]
     Active Substance: EVOLOCUMAB
     Dosage: STRENGTH: 1 MG, SINGLE USE PREFILLED SYRINGE AND AUTOINJECTOR, DOSAGE FORM: SOLUTION SUBCUTENEOUS
     Route: 058
  5. LODALIS [Suspect]
     Active Substance: COLESEVELAM HYDROCHLORIDE
     Indication: TYPE IIA HYPERLIPIDAEMIA
     Dosage: DOSAGE FORM: POWDER FOR SUSPENSION ORAL, FREQUENCY: 3 EVERY 1 DAYS
     Route: 048
  6. LODALIS [Suspect]
     Active Substance: COLESEVELAM HYDROCHLORIDE
     Indication: TYPE IIA HYPERLIPIDAEMIA
     Route: 058
  7. PRALUENT [Suspect]
     Active Substance: ALIROCUMAB
     Indication: TYPE IIA HYPERLIPIDAEMIA
     Dosage: DOSAGE FORM: SOLUTION SUBCUTENEOUS
     Route: 058
  8. ROSUVASTATIN/ROSUVASTATIN CALCIUM [Concomitant]
     Active Substance: ROSUVASTATIN CALCIUM
  9. ATORVASTATIN/ATORVASTATIN CALCIUM [Suspect]
     Active Substance: ATORVASTATIN CALCIUM
     Indication: LIPIDS INCREASED
     Dosage: FREQUENCY: 1 EVERY 1 DAYS
  10. EZETROL [Concomitant]
     Active Substance: EZETIMIBE
  11. SYNTHROID [Concomitant]
     Active Substance: LEVOTHYROXINE SODIUM

REACTIONS (6)
  - Lipids increased [Recovered/Resolved]
  - Myalgia [Recovered/Resolved]
  - Therapeutic response decreased [Unknown]
  - Hypothyroidism [Recovered/Resolved]
  - Basedow^s disease [Recovered/Resolved]
  - Abdominal discomfort [Recovered/Resolved]
